FAERS Safety Report 7131498-6 (Version None)
Quarter: 2010Q4

REPORT INFORMATION
  Report Type: 
  Country: None (occurrence: None)
  Receive Date: 20101201
  Receipt Date: 20101123
  Transmission Date: 20110411
  Serious: Yes (Other)
  Sender: FDA-Public Use
  Company Number: US-AMGEN-KDL394862

PATIENT

DRUGS (7)
  1. ENBREL [Suspect]
     Indication: RHEUMATOID ARTHRITIS
     Dosage: 50 MG, QWK
     Dates: start: 20090318, end: 20101014
  2. METHOTREXATE [Concomitant]
     Dosage: 15 MG, QWK
     Route: 048
  3. FOLIC ACID [Concomitant]
  4. VICODIN [Concomitant]
  5. NAPROXEN                           /00256202/ [Concomitant]
  6. PREDNISONE [Concomitant]
  7. ACIPHEX [Concomitant]

REACTIONS (7)
  - ASTHMA [None]
  - DYSPNOEA [None]
  - GASTRIC BYPASS [None]
  - HEADACHE [None]
  - HIP ARTHROPLASTY [None]
  - SINUSITIS [None]
  - WHEEZING [None]
